FAERS Safety Report 11093400 (Version 3)
Quarter: 2016Q3

REPORT INFORMATION
  Report Type: Spontaneous
  Country: CA (occurrence: CA)
  Receive Date: 20150506
  Receipt Date: 20160728
  Transmission Date: 20161109
  Serious: Yes (Hospitalization)
  Sender: FDA-Public Use
  Company Number: CA-GLAXOSMITHKLINE-A1079911A

PATIENT
  Age: 51 Year
  Sex: Female
  Weight: 63 kg

DRUGS (3)
  1. BENLYSTA [Suspect]
     Active Substance: BELIMUMAB
     Indication: SYSTEMIC LUPUS ERYTHEMATOSUS
     Dosage: 0, 2, 4 WEEKS THEN EVERY 4 WEEKS
     Route: 042
     Dates: start: 20140411
  2. BENLYSTA [Suspect]
     Active Substance: BELIMUMAB
     Dosage: 610 MG, UNK
  3. BENLYSTA [Suspect]
     Active Substance: BELIMUMAB
     Dosage: 610 MG, Q4 WEEKS UNK

REACTIONS (8)
  - Underdose [Unknown]
  - Arthralgia [Unknown]
  - Cough [Unknown]
  - Asthma [Unknown]
  - Drug ineffective [Not Recovered/Not Resolved]
  - Oedema peripheral [Unknown]
  - General physical health deterioration [Unknown]
  - Influenza [Recovered/Resolved]

NARRATIVE: CASE EVENT DATE: 20141214
